FAERS Safety Report 20504500 (Version 1)
Quarter: 2022Q1

REPORT INFORMATION
  Report Type: Other
  Country: US (occurrence: None)
  Receive Date: 20220223
  Receipt Date: 20220223
  Transmission Date: 20220423
  Serious: Yes (Other)
  Sender: FDA-Public Use
  Company Number: US-ROCHE-3024048

PATIENT
  Age: 52 Year
  Sex: Female
  Weight: 99.880 kg

DRUGS (23)
  1. OCREVUS [Suspect]
     Active Substance: OCRELIZUMAB
     Indication: Relapsing-remitting multiple sclerosis
     Dosage: DATE OF PREVIOUS INFUSION: 21/JUN/2021, 23/JUN/2020, 09/JUN/2020; DATE OF NEXT INFUSION: 30/DEC/2021
     Route: 042
  2. OCREVUS [Suspect]
     Active Substance: OCRELIZUMAB
     Indication: Secondary progressive multiple sclerosis
     Dosage: ROUTE IS A PORT THAT WAS PLACED
     Route: 042
  3. BACLOFEN [Concomitant]
     Active Substance: BACLOFEN
     Indication: Muscle spasticity
     Route: 048
     Dates: start: 199402
  4. ZANAFLEX [Concomitant]
     Active Substance: TIZANIDINE HYDROCHLORIDE
     Indication: Muscle spasticity
     Route: 048
  5. HYDROCHLOROTHIAZIDE [Concomitant]
     Active Substance: HYDROCHLOROTHIAZIDE
     Indication: Fluid retention
     Dosage: MEDICATION IS TAKEN IN THE MORNING ;ONGOING: YES
     Route: 048
  6. LEVOTHYROXINE [Concomitant]
     Active Substance: LEVOTHYROXINE
     Dosage: DOSE IS .88 MCG , ON MONDAY AND THURSDAY THE DOSE IS HALF DOSE BUT THE OTHER DOSE IS?THE FULL DOSE ;
     Route: 048
     Dates: start: 2002
  7. MELOXICAM [Concomitant]
     Active Substance: MELOXICAM
     Indication: Pain
     Dosage: MEDICATION IS TAKEN IN THE MORNING ;ONGOING: YES
     Route: 048
     Dates: start: 2008
  8. EZETIMIBE [Concomitant]
     Active Substance: EZETIMIBE
     Indication: Blood cholesterol
     Dosage: AT NIGHT ;ONGOING: YES
     Route: 048
  9. CITALOPRAM [Concomitant]
     Active Substance: CITALOPRAM HYDROBROMIDE
     Indication: Fatigue
     Route: 048
  10. OMEPRAZOLE [Concomitant]
     Active Substance: OMEPRAZOLE
     Dosage: YES
     Route: 048
  11. ASPIRIN [Concomitant]
     Active Substance: ASPIRIN
     Indication: Anticoagulant therapy
     Dosage: DOSE IS AT NIGHT ;ONGOING: YES
     Route: 048
     Dates: start: 2008
  12. AMPYRA [Concomitant]
     Active Substance: DALFAMPRIDINE
     Dosage: YES
     Route: 048
     Dates: start: 2020
  13. GABAPENTIN [Concomitant]
     Active Substance: GABAPENTIN
     Indication: Neuralgia
     Dosage: ONE IN THE MORNING, 2 IN THE EVENING ;ONGOING: YES
     Route: 048
     Dates: start: 2008
  14. POTASSIUM [Concomitant]
     Active Substance: POTASSIUM
     Indication: Blood potassium decreased
     Dosage: WAS INCREASED TO 2 IN THE MORNING AND 2 AT NIGHT DEC-2021 PRIOR TO THIS WAS 2 IN THE?AM ONE AT NIGHT
     Route: 048
     Dates: start: 2009
  15. ESTRADIOL [Concomitant]
     Active Substance: ESTRADIOL
     Indication: Hysterectomy
     Dosage: TRANSDERMAL PATCH IS CHANGED TWICE A WEEK ;ONGOING: YES
     Route: 062
     Dates: start: 2018
  16. LORAZEPAM [Concomitant]
     Active Substance: LORAZEPAM
     Indication: Anxiety
     Dosage: REPORTED AS 1 OR 2 TABLETS TWICE A DAY ;ONGOING: YES
     Route: 048
     Dates: start: 2019
  17. LORAZEPAM [Concomitant]
     Active Substance: LORAZEPAM
     Indication: Panic attack
  18. VITAMIN C [Concomitant]
     Active Substance: ASCORBIC ACID
     Indication: COVID-19
     Dosage: IN THE MORNING ;ONGOING: YES
     Route: 048
     Dates: start: 2000
  19. MELATONIN [Concomitant]
     Active Substance: MELATONIN
     Dosage: YES
     Route: 060
  20. ZOLPIDEM [Concomitant]
     Active Substance: ZOLPIDEM TARTRATE
     Dosage: YES
     Route: 048
     Dates: start: 2001
  21. ZINC [Concomitant]
     Active Substance: ZINC
     Dosage: YES
     Route: 048
  22. ATENOLOL [Concomitant]
     Active Substance: ATENOLOL
     Indication: Hypertension
     Dosage: MEDICATION IS TAKEN IN THE MORNING ;ONGOING: YES
     Route: 048
     Dates: start: 2000
  23. AUBAGIO [Concomitant]
     Active Substance: TERIFLUNOMIDE

REACTIONS (5)
  - Relapsing multiple sclerosis [Recovered/Resolved]
  - COVID-19 [Recovering/Resolving]
  - Therapeutic product effect decreased [Unknown]
  - Blood potassium decreased [Recovered/Resolved]
  - Fall [Unknown]

NARRATIVE: CASE EVENT DATE: 20210301
